FAERS Safety Report 6682776-6 (Version None)
Quarter: 2010Q2

REPORT INFORMATION
  Report Type: 
  Country: None (occurrence: None)
  Receive Date: 20100413
  Receipt Date: 20100329
  Transmission Date: 20101027
  Serious: Yes (Death, Hospitalization, Other)
  Sender: FDA-Public Use
  Company Number: A-US2010-34664

PATIENT
  Age: 75 Year
  Sex: Female

DRUGS (3)
  1. TRACLEER [Suspect]
     Indication: PULMONARY ARTERIAL HYPERTENSION
     Dosage: ORAL
     Route: 048
     Dates: start: 20060215, end: 20100322
  2. REVATIO [Concomitant]
  3. COUMADIN [Concomitant]

REACTIONS (6)
  - CARDIAC FAILURE [None]
  - DEPRESSION [None]
  - DISEASE PROGRESSION [None]
  - FALL [None]
  - PULMONARY ARTERIAL HYPERTENSION [None]
  - SUBDURAL HAEMATOMA [None]
